FAERS Safety Report 4504172-X (Version None)
Quarter: 2004Q4

REPORT INFORMATION
  Report Type: 
  Country: None (occurrence: None)
  Receive Date: 20041115
  Receipt Date: 20041104
  Transmission Date: 20050328
  Serious: Yes (Hospitalization)
  Sender: FDA-Public Use
  Company Number: 2004-11-0419

PATIENT
  Age: 26 Year
  Sex: Female

DRUGS (1)
  1. PROVENTIL [Suspect]
     Indication: ASTHMA
     Dosage: 2 PUFFS/ TID ORAL AER INH
     Route: 055

REACTIONS (6)
  - ASTHENIA [None]
  - CONSTIPATION [None]
  - FATIGUE [None]
  - HYPOKALAEMIA [None]
  - LAXATIVE ABUSE [None]
  - OCCUPATIONAL EXPOSURE TO AIR CONTAMINANTS [None]
